FAERS Safety Report 8777667 (Version 1)
Quarter: 2012Q4

REPORT INFORMATION
  Report Type: 
  Country: CA (occurrence: CA)
  Receive Date: 20120910
  Receipt Date: 20120910
  Transmission Date: 20130627
  Serious: Yes (Life-Threatening, Hospitalization)
  Sender: FDA-Public Use
  Company Number: CA-NOVOPROD-359168

PATIENT
  Sex: Male

DRUGS (1)
  1. NIASTASE [Suspect]
     Indication: SURGERY
     Route: 065

REACTIONS (3)
  - Arteriovenous fistula thrombosis [Not Recovered/Not Resolved]
  - Sepsis [Not Recovered/Not Resolved]
  - Arterial thrombosis [Not Recovered/Not Resolved]
